FAERS Safety Report 13670796 (Version 1)
Quarter: 2017Q2

REPORT INFORMATION
  Report Type: Spontaneous
  Country: US (occurrence: US)
  Receive Date: 20170620
  Receipt Date: 20170620
  Transmission Date: 20170830
  Serious: No
  Sender: FDA-Public Use
  Company Number: US-ROCHE-1176735

PATIENT
  Sex: Male

DRUGS (1)
  1. XELODA [Suspect]
     Active Substance: CAPECITABINE
     Indication: PRODUCT USED FOR UNKNOWN INDICATION
     Dosage: STARTS 5 DAYS INTO TREATMENT WEEK AND ENDS FEW DAYS INTO WEEK OFF
     Route: 065

REACTIONS (2)
  - Glossodynia [Unknown]
  - Gingival pain [Unknown]
